FAERS Safety Report 23594337 (Version 2)
Quarter: 2025Q2

REPORT INFORMATION
  Report Type: Spontaneous
  Country: PT (occurrence: PT)
  Receive Date: 20240305
  Receipt Date: 20250505
  Transmission Date: 20250716
  Serious: Yes (Life-Threatening, Hospitalization, Other)
  Sender: AUROBINDO
  Company Number: PT-OPELLA-2024OHG004744

PATIENT
  Age: 8 Year
  Sex: Male

DRUGS (10)
  1. IBUPROFEN [Suspect]
     Active Substance: IBUPROFEN
     Indication: Myalgia
     Route: 065
  2. IBUPROFEN [Suspect]
     Active Substance: IBUPROFEN
     Indication: Headache
  3. IBUPROFEN [Suspect]
     Active Substance: IBUPROFEN
     Indication: Pain
  4. IBUPROFEN [Suspect]
     Active Substance: IBUPROFEN
     Indication: Rhinitis
  5. IBUPROFEN [Suspect]
     Active Substance: IBUPROFEN
     Indication: Pyrexia
  6. CEFPODOXIME [Suspect]
     Active Substance: CEFPODOXIME
     Indication: Croup infectious
     Route: 065
  7. CEFPODOXIME [Suspect]
     Active Substance: CEFPODOXIME
     Indication: Vomiting
  8. CEFPODOXIME [Suspect]
     Active Substance: CEFPODOXIME
     Indication: Headache
  9. CEFPODOXIME [Suspect]
     Active Substance: CEFPODOXIME
     Indication: Rhinitis
  10. CEFPODOXIME [Suspect]
     Active Substance: CEFPODOXIME
     Indication: Pyrexia

REACTIONS (1)
  - Rhabdomyolysis [Recovered/Resolved]
